FAERS Safety Report 5553429-2 (Version None)
Quarter: 2007Q4

REPORT INFORMATION
  Report Type: 
  Country: None (occurrence: None)
  Receive Date: 20071211
  Receipt Date: 20071203
  Transmission Date: 20080405
  Serious: Yes (Hospitalization)
  Sender: FDA-Public Use
  Company Number: 163-21880-07120092

PATIENT
  Age: 36 Year
  Sex: Male

DRUGS (1)
  1. REVLIMID [Suspect]
     Indication: MULTIPLE MYELOMA
     Dosage: 25 MG,1IN 1 D,ORAL
     Route: 048
     Dates: start: 20070710, end: 20071001

REACTIONS (4)
  - AMMONIA INCREASED [None]
  - BLOOD CALCIUM INCREASED [None]
  - BLOOD POTASSIUM INCREASED [None]
  - DRUG INEFFECTIVE [None]
